FAERS Safety Report 4558307-3 (Version None)
Quarter: 2005Q1

REPORT INFORMATION
  Report Type: 
  Country: None (occurrence: None)
  Receive Date: 20050103
  Receipt Date: 20040929
  Transmission Date: 20050727
  Serious: Yes (Other)
  Sender: FDA-Public Use
  Company Number: 2004UW20498

PATIENT
  Age: 75 Year
  Sex: Female
  Weight: 55.7924 kg

DRUGS (9)
  1. CRESTOR [Suspect]
     Indication: BLOOD CHOLESTEROL INCREASED
     Dosage: 10 MG PO
     Route: 048
     Dates: end: 20040101
  2. LOTREL [Concomitant]
  3. CLONIDINE [Concomitant]
  4. NADOLOL [Concomitant]
  5. ASPIRIN [Concomitant]
  6. LANOXIN [Concomitant]
  7. LASIX [Concomitant]
  8. ZELNORM [Concomitant]
  9. VIOXX [Concomitant]

REACTIONS (2)
  - BLOOD CREATININE INCREASED [None]
  - BLOOD UREA INCREASED [None]
